FAERS Safety Report 14681511 (Version 3)
Quarter: 2019Q4

REPORT INFORMATION
  Report Type: Spontaneous
  Country: US (occurrence: US)
  Receive Date: 20180326
  Receipt Date: 20191001
  Transmission Date: 20200122
  Serious: Yes (Other)
  Sender: FDA-Public Use
  Company Number: US-ELI_LILLY_AND_COMPANY-US201803009324

PATIENT
  Sex: Male

DRUGS (2)
  1. CIALIS [Suspect]
     Active Substance: TADALAFIL
     Indication: ERECTILE DYSFUNCTION
     Dosage: UNK, PRN
     Route: 065
     Dates: start: 20110408, end: 20110615
  2. VIAGRA [Suspect]
     Active Substance: SILDENAFIL CITRATE
     Indication: ERECTILE DYSFUNCTION
     Dosage: 0.5 OR 1 DOSAGE FORM, PRN
     Route: 048
     Dates: start: 20130711, end: 20131230

REACTIONS (6)
  - Malignant melanoma stage I [Unknown]
  - Infection [Unknown]
  - Pulmonary oedema [Unknown]
  - Loss of consciousness [Unknown]
  - Coronary artery disease [Unknown]
  - Dehydration [Unknown]

NARRATIVE: CASE EVENT DATE: 20110628
